FAERS Safety Report 5634740-3 (Version None)
Quarter: 2008Q1

REPORT INFORMATION
  Report Type: 
  Country: None (occurrence: None)
  Receive Date: 20080131
  Receipt Date: 20071212
  Transmission Date: 20080703
  Serious: Yes (Other)
  Sender: FDA-Public Use
  Company Number: PHEH2007US15765

PATIENT

DRUGS (1)
  1. TEKTURNA [Suspect]
     Dosage: 300 MG

REACTIONS (2)
  - OEDEMA [None]
  - WEIGHT INCREASED [None]
